FAERS Safety Report 20622699 (Version 1)
Quarter: 2022Q1

REPORT INFORMATION
  Report Type: Spontaneous
  Country: US (occurrence: US)
  Receive Date: 20220322
  Receipt Date: 20220322
  Transmission Date: 20220423
  Serious: No
  Sender: FDA-Public Use
  Company Number: US-ALLERGAN-2143885US

PATIENT
  Sex: Female
  Weight: 72.562 kg

DRUGS (1)
  1. LATISSE [Suspect]
     Active Substance: BIMATOPROST
     Indication: Growth of eyelashes
     Dosage: 2 GTT, QD
     Route: 061

REACTIONS (2)
  - Eyelid exfoliation [Recovering/Resolving]
  - Erythema of eyelid [Recovering/Resolving]
